FAERS Safety Report 13765463 (Version 3)
Quarter: 2019Q2

REPORT INFORMATION
  Report Type: Spontaneous
  Country: US (occurrence: US)
  Receive Date: 20170718
  Receipt Date: 20190409
  Transmission Date: 20190711
  Serious: Yes (Hospitalization)
  Sender: FDA-Public Use
  Company Number: PHEH2017US021993

PATIENT
  Sex: Female

DRUGS (3)
  1. PROMACTA [Suspect]
     Active Substance: ELTROMBOPAG OLAMINE
     Indication: ANAEMIA
     Dosage: 12.5 MG, QD
     Route: 048
     Dates: start: 20160322
  2. PROMACTA [Suspect]
     Active Substance: ELTROMBOPAG OLAMINE
     Indication: NEUTROPENIA
     Dosage: 50 MG, QD
     Route: 048
     Dates: start: 20160325
  3. PROMACTA [Suspect]
     Active Substance: ELTROMBOPAG OLAMINE
     Indication: APLASTIC ANAEMIA

REACTIONS (5)
  - Memory impairment [Unknown]
  - Product use in unapproved indication [Not Recovered/Not Resolved]
  - Pyrexia [Unknown]
  - Myalgia [Unknown]
  - Insomnia [Unknown]
